FAERS Safety Report 5332796-9 (Version None)
Quarter: 2007Q2

REPORT INFORMATION
  Report Type: 
  Country: None (occurrence: None)
  Receive Date: 20070523
  Receipt Date: 20070511
  Transmission Date: 20071010
  Serious: Yes (Hospitalization, Disabling, Other)
  Sender: FDA-Public Use
  Company Number: US-PFIZER INC-2007039621

PATIENT
  Age: 48 Year
  Sex: Female

DRUGS (1)
  1. CELEBREX [Suspect]

REACTIONS (8)
  - ABASIA [None]
  - CARDIAC DISORDER [None]
  - HYPOAESTHESIA [None]
  - HYPONATRAEMIA [None]
  - LOCALISED INFECTION [None]
  - RENAL FAILURE [None]
  - STEVENS-JOHNSON SYNDROME [None]
  - THROMBOSIS [None]
